FAERS Safety Report 10096189 (Version 1)
Quarter: 2014Q2

REPORT INFORMATION
  Report Type: Spontaneous
  Country: US (occurrence: None)
  Receive Date: 20140410
  Receipt Date: 20140410
  Transmission Date: 20141212
  Serious: Yes (Other)
  Sender: FDA-Public Use
  Company Number: 2013-247

PATIENT
  Age: 66 Year
  Sex: Female

DRUGS (10)
  1. FAZACLO [Suspect]
     Indication: SCHIZOPHRENIA, PARANOID TYPE
     Dosage: 150-400 MG, QD, ORAL
     Route: 048
     Dates: start: 2008
  2. DIGOXIN (DIGOXIN) [Concomitant]
  3. FUROSEMIDE (FUROSEMIDE) [Concomitant]
  4. POTASSIUM CHLORIDE (POTASSIUM CHLORIDE) [Concomitant]
  5. NORCO (HYDROCODONE BITARTRATE, PARACETAMOL) [Concomitant]
  6. MIRALAX (MACROGOL) [Concomitant]
  7. VITAMIN E (TOCOPHERYL ACETATE) [Concomitant]
  8. RISPERDAL [Concomitant]
  9. LORAZEPAM (LORAZEPAM) [Concomitant]
  10. LOXAPINE (LOXAPINE SUCCINATE) [Concomitant]

REACTIONS (5)
  - Orthostatic hypotension [None]
  - Loss of consciousness [None]
  - Drooling [None]
  - Fall [None]
  - Constipation [None]
